FAERS Safety Report 9704331 (Version 7)
Quarter: 2016Q2

REPORT INFORMATION
  Report Type: Spontaneous
  Country: US (occurrence: US)
  Receive Date: 20131122
  Receipt Date: 20160516
  Transmission Date: 20160815
  Serious: Yes (Disabling, Other)
  Sender: FDA-Public Use
  Company Number: US-MERCK-1311USA005781

PATIENT
  Sex: Male

DRUGS (2)
  1. FINASTERIDE. [Suspect]
     Active Substance: FINASTERIDE
     Indication: PROSTATOMEGALY
     Dosage: 5 MG, QD
     Route: 048
     Dates: start: 20110831
  2. PROSCAR [Suspect]
     Active Substance: FINASTERIDE
     Indication: PROSTATOMEGALY
     Dosage: 5 MG, QD
     Route: 048
     Dates: start: 20021213

REACTIONS (35)
  - Prostate cancer [Not Recovered/Not Resolved]
  - Genital atrophy [Unknown]
  - Cholelithiasis [Unknown]
  - Seizure [Unknown]
  - Arteriosclerosis [Unknown]
  - Haemangioma [Unknown]
  - Calculus urinary [Not Recovered/Not Resolved]
  - Sensory loss [Unknown]
  - Knee arthroplasty [Unknown]
  - Hyperglycaemia [Unknown]
  - Cerebral haemorrhage [Unknown]
  - Constipation [Unknown]
  - Emotional distress [Unknown]
  - Anxiety [Unknown]
  - Prostatomegaly [Unknown]
  - Erectile dysfunction [Unknown]
  - Gynaecomastia [Unknown]
  - Gastrooesophageal reflux disease [Unknown]
  - Dementia [Unknown]
  - Renal cyst [Unknown]
  - Adjustment disorder [Unknown]
  - Type 2 diabetes mellitus [Unknown]
  - Neuropathy peripheral [Unknown]
  - Urinary tract infection [Unknown]
  - Chronic gastritis [Unknown]
  - Micturition urgency [Unknown]
  - Hypertension [Unknown]
  - Dyslipidaemia [Unknown]
  - Mental disorder due to a general medical condition [Unknown]
  - Pollakiuria [Unknown]
  - Nocturia [Unknown]
  - Depression [Unknown]
  - Loss of libido [Unknown]
  - Flank pain [Unknown]
  - Aneurysm [Unknown]

NARRATIVE: CASE EVENT DATE: 20021213
